FAERS Safety Report 16682424 (Version 3)
Quarter: 2019Q3

REPORT INFORMATION
  Report Type: Report from Study
  Country: IL (occurrence: IL)
  Receive Date: 20190808
  Receipt Date: 20190912
  Transmission Date: 20191004
  Serious: No
  Sender: FDA-Public Use
  Company Number: IL-PFIZER INC-2019335272

PATIENT
  Age: 22 Year
  Sex: Female
  Weight: 58.2 kg

DRUGS (1)
  1. TALIGLUCERASE ALFA [Suspect]
     Active Substance: TALIGLUCERASE ALFA
     Indication: GAUCHER^S DISEASE
     Dosage: 30 IU/KG, CYCLIC (EVERY 2 WEEKS)
     Route: 042
     Dates: start: 20190717

REACTIONS (1)
  - Drug hypersensitivity [Recovered/Resolved]

NARRATIVE: CASE EVENT DATE: 20190731
